FAERS Safety Report 23014905 (Version 1)
Quarter: 2023Q4

REPORT INFORMATION
  Report Type: Spontaneous
  Country: US (occurrence: US)
  Receive Date: 20231002
  Receipt Date: 20231002
  Transmission Date: 20240110
  Serious: Yes (Other)
  Sender: FDA-Public Use
  Company Number: US-BAYER-2023A135872

PATIENT

DRUGS (2)
  1. LOTRIMIN [Suspect]
     Active Substance: CLOTRIMAZOLE
     Route: 061
  2. TINACTIN [Suspect]
     Active Substance: TOLNAFTATE
     Route: 061

REACTIONS (3)
  - Exposure to toxic agent [None]
  - Recalled product administered [None]
  - Product impurity [None]
